FAERS Safety Report 15449725 (Version 1)
Quarter: 2018Q4

REPORT INFORMATION
  Report Type: Report from Study
  Country: DE (occurrence: DE)
  Receive Date: 20181001
  Receipt Date: 20181001
  Transmission Date: 20190204
  Serious: Yes (Other)
  Sender: FDA-Public Use
  Company Number: DE-ADIENNEP-2018AD000499

PATIENT
  Age: 70 Year
  Sex: Male

DRUGS (1)
  1. THIOTEPA. [Suspect]
     Active Substance: THIOTEPA
     Indication: CHEMOTHERAPY
     Dosage: 5 ML
     Route: 037

REACTIONS (4)
  - Headache [Unknown]
  - Meningism [Unknown]
  - Device malfunction [Unknown]
  - Off label use [Unknown]
